FAERS Safety Report 7244608-7 (Version None)
Quarter: 2011Q1

REPORT INFORMATION
  Report Type: 
  Country: None (occurrence: None)
  Receive Date: 20110125
  Receipt Date: 20100708
  Transmission Date: 20110831
  Serious: Yes (Other)
  Sender: FDA-Public Use
  Company Number: US-MYLANLABS-2010S1006743

PATIENT
  Age: 27 Year
  Sex: Male

DRUGS (10)
  1. ZONISAMIDE [Suspect]
     Dosage: AT 6PM
     Route: 048
     Dates: start: 20090101
  2. ZONISAMIDE [Suspect]
     Indication: EPILEPSY
     Route: 048
     Dates: start: 20090101
  3. ZONISAMIDE [Suspect]
     Dosage: AT 3PM
     Route: 048
     Dates: start: 20090101
  4. MULTI-VITAMIN [Concomitant]
  5. ZONISAMIDE [Suspect]
     Indication: CONVULSION
     Route: 048
     Dates: start: 20090101
  6. ZONISAMIDE [Suspect]
     Dosage: AT 3PM
     Route: 048
     Dates: start: 20090101
  7. VITAMIN B [Concomitant]
  8. ZONISAMIDE [Suspect]
     Dosage: AT 6PM
     Route: 048
     Dates: start: 20090101
  9. LYRICA [Concomitant]
     Indication: CONVULSION
     Route: 048
  10. LAMICTAL [Concomitant]
     Indication: CONVULSION
     Route: 048

REACTIONS (2)
  - DRUG INEFFECTIVE [None]
  - COMPLEX PARTIAL SEIZURES [None]
